FAERS Safety Report 7273045-4 (Version None)
Quarter: 2011Q1

REPORT INFORMATION
  Report Type: 
  Country: None (occurrence: None)
  Receive Date: 20110203
  Receipt Date: 20110127
  Transmission Date: 20110831
  Serious: Yes (Other)
  Sender: FDA-Public Use
  Company Number: B0697746A

PATIENT
  Age: 50 Year
  Sex: Female

DRUGS (1)
  1. AUGMENTIN [Suspect]
     Dosage: 1G PER DAY
     Route: 048
     Dates: start: 20110113, end: 20110114

REACTIONS (2)
  - HYPERTENSIVE CRISIS [None]
  - TACHYCARDIA [None]
